FAERS Safety Report 5764884-7 (Version None)
Quarter: 2008Q2

REPORT INFORMATION
  Report Type: 
  Country: None (occurrence: None)
  Receive Date: 20080611
  Receipt Date: 20080605
  Transmission Date: 20081010
  Serious: Yes (Other)
  Sender: FDA-Public Use
  Company Number: DE-AVENTIS-200811519DE

PATIENT
  Sex: Male

DRUGS (3)
  1. TAXOTERE [Suspect]
     Dosage: DOSE: NOT REPORTED
     Route: 041
     Dates: end: 20070501
  2. CISPLATIN [Concomitant]
     Dosage: DOSE: NOT REPORTED
     Dates: end: 20070501
  3. FLUOROURACIL [Concomitant]
     Dosage: DOSE: NOT REPORTED
     Dates: end: 20070501

REACTIONS (1)
  - CENTRAL NERVOUS SYSTEM LYMPHOMA [None]
